FAERS Safety Report 4318301-4 (Version None)
Quarter: 2004Q1

REPORT INFORMATION
  Report Type: 
  Country: None (occurrence: None)
  Receive Date: 20040315
  Receipt Date: 20040304
  Transmission Date: 20041129
  Serious: Yes (Other)
  Sender: FDA-Public Use
  Company Number: 205096

PATIENT
  Age: 12 Year
  Sex: Male
  Weight: 55.3 kg

DRUGS (4)
  1. XOLAIR [Suspect]
     Indication: ASTHMA
     Dosage: 300 MG, Q2W, SUBCUTANEOUS
     Route: 058
     Dates: start: 20031202, end: 20040218
  2. ADVAIR DISKUS [Concomitant]
  3. NASACORT [Concomitant]
  4. CLARINEX [Concomitant]

REACTIONS (3)
  - ANGIONEUROTIC OEDEMA [None]
  - BRONCHOSPASM [None]
  - URTICARIA GENERALISED [None]
